FAERS Safety Report 15675718 (Version 6)
Quarter: 2019Q1

REPORT INFORMATION
  Report Type: Spontaneous
  Country: RU (occurrence: RU)
  Receive Date: 20181130
  Receipt Date: 20190315
  Transmission Date: 20190417
  Serious: Yes (Hospitalization, Other)
  Sender: FDA-Public Use
  Company Number: RU-PFIZER INC-2018487245

PATIENT
  Age: 82 Year
  Sex: Female

DRUGS (14)
  1. ETHYLMETHYLHYDROXIPIRIDINE SUCCINATE [Concomitant]
     Indication: ANTIOXIDANT THERAPY
     Dosage: 250 MG, 1X/DAY
     Dates: start: 2017, end: 201801
  2. AMIODARONE HCL [Suspect]
     Active Substance: AMIODARONE HYDROCHLORIDE
     Indication: ATRIAL FIBRILLATION
     Dosage: 200 MG, AS NEEDED
     Dates: start: 20170101
  3. TORASEMIDE [Concomitant]
     Active Substance: TORSEMIDE
     Dosage: 5 MG, 2X/DAY
     Dates: start: 2017
  4. CLONAZEPAM. [Concomitant]
     Active Substance: CLONAZEPAM
     Indication: INSOMNIA
     Dosage: 2 MG, AS NEEDED
     Dates: start: 2017, end: 201712
  5. AMLODIPINE [Concomitant]
     Active Substance: AMLODIPINE BESYLATE
     Dosage: 5 MG, UNK
     Dates: start: 2017
  6. TORASEMIDE [Concomitant]
     Active Substance: TORSEMIDE
     Dosage: 2 MG, DAILY
     Dates: start: 2017
  7. MOXONIDINE [Concomitant]
     Active Substance: MOXONIDINE
     Dosage: 0.2 MG, DAILY
     Dates: start: 20171225
  8. PERINDOPRIL [Concomitant]
     Active Substance: PERINDOPRIL
     Dosage: 5 MG, DAILY
     Dates: start: 2017
  9. PENTAERITHRITYL TETRANITRATE [Concomitant]
     Active Substance: PENTAERYTHRITOL TETRANITRATE
     Indication: ANGINA PECTORIS
     Dosage: 10 MG, AS NEEDED
     Dates: start: 2017
  10. AMIODARONE HCL [Interacting]
     Active Substance: AMIODARONE HYDROCHLORIDE
     Indication: HEART RATE IRREGULAR
  11. ROSUVASTATIN. [Interacting]
     Active Substance: ROSUVASTATIN
     Indication: ATRIAL FIBRILLATION
     Dosage: 10 MG, DAILY
     Dates: start: 20171225, end: 20180124
  12. EMOXYPINE SUCCINATE [Concomitant]
     Dosage: 250 MG, 1X/DAY
     Dates: start: 2017, end: 201801
  13. WARFARIN SODIUM. [Interacting]
     Active Substance: WARFARIN SODIUM
     Indication: ATRIAL FIBRILLATION
     Dosage: 2.5 MG, DAILY
     Dates: start: 2017
  14. BISOPROLOL [Concomitant]
     Active Substance: BISOPROLOL
     Dosage: 10 MG, DAILY
     Dates: start: 2017

REACTIONS (2)
  - Labelled drug-drug interaction medication error [Recovered/Resolved]
  - Hypocoagulable state [Recovered/Resolved]

NARRATIVE: CASE EVENT DATE: 201712
